FAERS Safety Report 5911543-3 (Version None)
Quarter: 2008Q4

REPORT INFORMATION
  Report Type: 
  Country: None (occurrence: None)
  Receive Date: 20081007
  Receipt Date: 20080922
  Transmission Date: 20090506
  Serious: Yes (Other)
  Sender: FDA-Public Use
  Company Number: NL-GENENTECH-269213

PATIENT
  Age: 17 Month
  Sex: Female

DRUGS (4)
  1. MABTHERA [Suspect]
     Indication: OPSOCLONUS MYOCLONUS
     Dosage: 375 MG/M2, UNK
     Route: 042
  2. CLONAZEPAM [Suspect]
     Indication: OPSOCLONUS MYOCLONUS
     Dosage: UNK
     Route: 065
  3. IMMUNE GLOBULIN INTRAVENOUS (HUMAN) [Suspect]
     Indication: OPSOCLONUS MYOCLONUS
     Dosage: 150 MG/KG, UNK
     Route: 042
  4. METHYLPREDNISOLONE [Suspect]
     Indication: OPSOCLONUS MYOCLONUS
     Dosage: 15 MG/KG, UNK
     Route: 065

REACTIONS (2)
  - OPSOCLONUS MYOCLONUS [None]
  - PYREXIA [None]
